FAERS Safety Report 20024826 (Version 2)
Quarter: 2021Q4

REPORT INFORMATION
  Report Type: Spontaneous
  Country: DE (occurrence: DE)
  Receive Date: 20211102
  Receipt Date: 20211103
  Transmission Date: 20220303
  Serious: Yes (Hospitalization, Other)
  Sender: FDA-Public Use
  Company Number: DE-ADRED-06418-01

PATIENT
  Age: 60 Year
  Sex: Female
  Weight: 55 kg

DRUGS (17)
  1. FLUOROURACIL [Suspect]
     Active Substance: FLUOROURACIL
     Indication: Product used for unknown indication
     Dosage: BY REGIME 22-FEB-2021, SOLUTION FOR INJECTION/INFUSION
  2. CISPLATIN [Suspect]
     Active Substance: CISPLATIN
     Indication: Product used for unknown indication
     Dosage: NACH SCHEMA AM 22022021, INJEKTIONS-/INFUSIONSL?SUNG
  3. CETUXIMAB [Suspect]
     Active Substance: CETUXIMAB
     Indication: Product used for unknown indication
     Dosage: BY REGIME AM 22-FEB-2021, SOLUTION FOR INJECTION/INFUSION
  4. HYDROMORPHONE [Concomitant]
     Active Substance: HYDROMORPHONE
     Dosage: 4 MG, 1-0-1-0, RETARD-TABLETTEN
  5. ONDANSETRON [Concomitant]
     Active Substance: ONDANSETRON
     Dosage: 8 MILLIGRAM, UP TO 2 TIMES DAILY, TABLETS
  6. TORSEMIDE [Concomitant]
     Active Substance: TORSEMIDE
     Dosage: 5 MG, 1-0-0-0, TABLETTEN
  7. FLUOR VIGANTOL [Concomitant]
     Dosage: 1000 IE, 1-0-0-0, TABLETTEN
  8. MOVICOL                            /01749801/ [Concomitant]
     Dosage: 1-0-0-0, PULVER
  9. PREGABALIN [Concomitant]
     Active Substance: PREGABALIN
     Dosage: 100 MG, 1-0-1-0, KAPSELN
  10. MCP [Concomitant]
     Active Substance: METOCLOPRAMIDE HYDROCHLORIDE
     Dosage: 8.91 MILLIGRAM, UP TO 3 TIMES DAILY, TABLETS
  11. PANTOPRAZOL                        /01263201/ [Concomitant]
     Dosage: 40 MG, 1-0-0-0, TABLETTEN
  12. FENTANYL [Concomitant]
     Active Substance: FENTANYL
     Dosage: 200 MICROGRAM (200 UG, MAX 4 TIMES DAILY, LOZENGES)
  13. KALINOR                            /00279301/ [Concomitant]
     Dosage: 2.0057|0.78|0.78 MG, 1-1-1-0, TABLETTEN
  14. METAMIZOLE [Concomitant]
     Active Substance: METAMIZOLE
     Dosage: 500 MG, 2-2-2-2, TABLETTEN
  15. BISACODYL [Concomitant]
     Active Substance: BISACODYL
     Dosage: 10 MILLIGRAM, PRN (10 MG, AS NEEDED, SUPPOSITORIES)
  16. MIRTAZAPINE [Concomitant]
     Active Substance: MIRTAZAPINE
     Dosage: 30 MG, 0-0-0-1, TABLETTEN
  17. MAGNESIUM [Concomitant]
     Active Substance: MAGNESIUM
     Dosage: UNK, QD, 1-0-0-0, GRANULES

REACTIONS (4)
  - Diarrhoea [Unknown]
  - Vomiting [Unknown]
  - General physical health deterioration [Unknown]
  - Nausea [Unknown]
